FAERS Safety Report 16320611 (Version 1)
Quarter: 2019Q2

REPORT INFORMATION
  Report Type: Spontaneous
  Country: CN (occurrence: CN)
  Receive Date: 20190516
  Receipt Date: 20190516
  Transmission Date: 20190711
  Serious: Yes (Other)
  Sender: FDA-Public Use
  Company Number: CN-PFIZER INC-2019205469

PATIENT
  Age: 82 Year
  Sex: Male
  Weight: 74.2 kg

DRUGS (1)
  1. INLYTA [Suspect]
     Active Substance: AXITINIB
     Indication: METASTATIC RENAL CELL CARCINOMA
     Dosage: 5 MG, 2X/DAY
     Route: 048
     Dates: start: 20181224, end: 20190329

REACTIONS (10)
  - Noninfective gingivitis [Recovering/Resolving]
  - Hypertension [Unknown]
  - Epistaxis [Recovering/Resolving]
  - Dysphonia [Recovering/Resolving]
  - Haemorrhage [Unknown]
  - Musculoskeletal pain [Unknown]
  - Myalgia [Recovering/Resolving]
  - Hepatic function abnormal [Recovering/Resolving]
  - Pharyngeal oedema [Recovering/Resolving]
  - Nasal dryness [Unknown]

NARRATIVE: CASE EVENT DATE: 20190225
